FAERS Safety Report 10176074 (Version 1)
Quarter: 2014Q2

REPORT INFORMATION
  Report Type: Spontaneous
  Country: US (occurrence: None)
  Receive Date: 20140425
  Receipt Date: 20140425
  Transmission Date: 20141212
  Serious: No
  Sender: FDA-Public Use
  Company Number: AP356-00477-SPO-US

PATIENT
  Age: 66 Year
  Sex: Female
  Weight: 142.4 kg

DRUGS (3)
  1. BELVIQ (LORCASERIN HYDROCHLORIDE) [Suspect]
     Indication: WEIGHT DECREASED
     Route: 048
     Dates: start: 201402, end: 201402
  2. SINGULAIR (MONTELUKAST) 10MG [Concomitant]
  3. ALBUTEROL [Concomitant]

REACTIONS (2)
  - Nasopharyngitis [None]
  - Cough [None]
